FAERS Safety Report 9321361 (Version 1)
Quarter: 2013Q2

REPORT INFORMATION
  Report Type: Spontaneous
  Country: US (occurrence: US)
  Receive Date: 20130531
  Receipt Date: 20130531
  Transmission Date: 20140414
  Serious: Yes (Hospitalization, Other)
  Sender: FDA-Public Use
  Company Number: US-PFIZER INC-2013164982

PATIENT
  Age: 48 Year
  Sex: Female
  Weight: 61.22 kg

DRUGS (3)
  1. LYRICA [Suspect]
     Indication: FIBROMYALGIA
     Dosage: 25 MG, 2X/DAY
     Route: 048
     Dates: start: 201208
  2. LYRICA [Suspect]
     Indication: PAIN
     Dosage: 50 MG, UNK
     Route: 048
     Dates: end: 201304
  3. LYRICA [Suspect]
     Indication: CONVULSION

REACTIONS (13)
  - Shock [Unknown]
  - Cardiac disorder [Unknown]
  - Convulsion [Unknown]
  - Palpitations [Unknown]
  - Swelling [Unknown]
  - Pain [Unknown]
  - Chest pain [Unknown]
  - Head injury [Recovered/Resolved]
  - Injury [Recovered/Resolved]
  - Coma [Recovered/Resolved]
  - Feeling abnormal [Unknown]
  - Blood triglycerides increased [Unknown]
  - Therapeutic response unexpected [Unknown]
